FAERS Safety Report 9170329 (Version 1)
Quarter: 2013Q1

REPORT INFORMATION
  Report Type: Spontaneous
  Country: US (occurrence: US)
  Receive Date: 20130319
  Receipt Date: 20130319
  Transmission Date: 20140127
  Serious: Yes (Hospitalization, Other)
  Sender: FDA-Public Use
  Company Number: US-JNJFOC-20130305611

PATIENT
  Sex: Female

DRUGS (1)
  1. XARELTO [Suspect]
     Indication: EMBOLISM VENOUS
     Route: 048

REACTIONS (5)
  - Mesenteric haematoma [Unknown]
  - Haemorrhagic ascites [Unknown]
  - Heart rate increased [Unknown]
  - Hypotension [Unknown]
  - Syncope [Unknown]
